FAERS Safety Report 6543080-X (Version None)
Quarter: 2010Q1

REPORT INFORMATION
  Report Type: 
  Country: None (occurrence: None)
  Receive Date: 20100120
  Receipt Date: 20100107
  Transmission Date: 20100710
  Serious: Yes (Other)
  Sender: FDA-Public Use
  Company Number: PHHY2010EG01017

PATIENT
  Age: 22 Year
  Sex: Female

DRUGS (3)
  1. CARBAMAZEPINE [Suspect]
     Indication: BENIGN INTRACRANIAL HYPERTENSION
     Dosage: UNK
  2. ACETAZOLAMIDE [Concomitant]
     Indication: INTRACRANIAL PRESSURE INCREASED
  3. MORPHINE [Concomitant]

REACTIONS (19)
  - BLOOD LACTIC ACID INCREASED [None]
  - CONJUNCTIVITIS [None]
  - DEHYDRATION [None]
  - HYPOTENSION [None]
  - LEUKOCYTOSIS [None]
  - LIVEDO RETICULARIS [None]
  - METABOLIC ACIDOSIS [None]
  - NIKOLSKY'S SIGN [None]
  - ORAL DISORDER [None]
  - PAIN [None]
  - PSEUDOMONAS INFECTION [None]
  - PYREXIA [None]
  - RASH [None]
  - RED BLOOD CELL SEDIMENTATION RATE INCREASED [None]
  - SEPSIS [None]
  - SKIN DISCOLOURATION [None]
  - SKIN EXFOLIATION [None]
  - SKIN LESION [None]
  - TOXIC EPIDERMAL NECROLYSIS [None]
